FAERS Safety Report 24679648 (Version 1)
Quarter: 2024Q4

REPORT INFORMATION
  Report Type: Spontaneous
  Country: TW (occurrence: TW)
  Receive Date: 20241129
  Receipt Date: 20241129
  Transmission Date: 20250114
  Serious: Yes (Other)
  Sender: SANOFI AVENTIS
  Company Number: TW-SANOFI-02317327

PATIENT
  Sex: Female

DRUGS (2)
  1. PLAVIX [Suspect]
     Active Substance: CLOPIDOGREL BISULFATE
     Indication: Product used for unknown indication
     Dosage: 75 MG, QD
     Route: 048
  2. PLAVIX [Suspect]
     Active Substance: CLOPIDOGREL BISULFATE
     Dosage: 75 MG, QOD
     Route: 048

REACTIONS (5)
  - Foreign body in throat [Unknown]
  - Platelet count decreased [Unknown]
  - Malabsorption [Unknown]
  - Weight decreased [Unknown]
  - Gastrointestinal disorder [Unknown]
